FAERS Safety Report 5604298-3 (Version None)
Quarter: 2008Q1

REPORT INFORMATION
  Report Type: 
  Country: None (occurrence: None)
  Receive Date: 20080128
  Receipt Date: 20080115
  Transmission Date: 20080703
  Serious: Yes (Hospitalization)
  Sender: FDA-Public Use
  Company Number: US-ELI_LILLY_AND_COMPANY-US200801000740

PATIENT
  Age: 62 Year
  Sex: Female
  Weight: 66.485 kg

DRUGS (16)
  1. FORTEO [Suspect]
     Dosage: UNK, UNK
     Route: 058
     Dates: start: 20070501
  2. ALBUTEROL [Concomitant]
     Dosage: 90 UG, EACH EVENING
     Route: 055
  3. AMBIEN [Concomitant]
     Dosage: 12.5 MG, OTHER
     Route: 048
  4. FOSAMAX [Concomitant]
     Dosage: 70 MG, WEEKLY (1/W)
     Route: 048
  5. HYDROCODONE BITARTRATE [Concomitant]
     Dosage: 10 MG, DAILY (1/D)
     Route: 048
  6. LIPITOR [Concomitant]
     Dosage: 20 MG, 2/D
     Route: 048
  7. LISINOPRIL [Concomitant]
     Dosage: 2.5 MG, 2/D
     Route: 048
  8. LORAZEPAM [Concomitant]
     Dosage: 2 MG, EVERY 6 HRS
     Route: 048
  9. SINGULAIR [Concomitant]
     Dosage: 10 MG, DAILY (1/D)
     Route: 048
  10. SOMA [Concomitant]
     Dosage: 350 MG, 4/D
     Route: 048
  11. SPIRONOLACTONE [Concomitant]
     Dosage: 25 MG, 2/D
     Route: 048
  12. SYNTHROID [Concomitant]
     Dosage: 0.05 MG, 2/D
     Route: 048
  13. TOPAMAX [Concomitant]
     Dosage: 100 MG, DAILY (1/D)
     Route: 048
  14. HYDROCODONE BITARTRATE + ACETAMINOPHEN [Concomitant]
     Dosage: 10 MG, AS NEEDED
     Route: 048
  15. LEXAPRO [Concomitant]
     Dosage: 20 MG, DAILY (1/D)
     Route: 048
  16. PHENERGAN HCL [Concomitant]
     Dosage: 25 MG, 2/D
     Route: 048

REACTIONS (5)
  - CATARACT OPERATION [None]
  - HOSPITALISATION [None]
  - HYPERGLYCAEMIA [None]
  - STAPHYLOCOCCAL INFECTION [None]
  - WEIGHT INCREASED [None]
